FAERS Safety Report 10090220 (Version 1)
Quarter: 2014Q2

REPORT INFORMATION
  Report Type: Spontaneous
  Country: US (occurrence: US)
  Receive Date: 20140421
  Receipt Date: 20140421
  Transmission Date: 20141212
  Serious: Yes (Hospitalization)
  Sender: FDA-Public Use
  Company Number: US-GLAXOSMITHKLINE-A1070170A

PATIENT
  Age: 77 Year
  Sex: Male

DRUGS (1)
  1. COREG [Suspect]
     Indication: CARDIAC DISORDER
     Dosage: 6.25MG UNKNOWN
     Route: 065
     Dates: start: 20040809

REACTIONS (3)
  - Neoplasm malignant [Unknown]
  - Surgery [Unknown]
  - Post procedural complication [Unknown]
